FAERS Safety Report 24392183 (Version 2)
Quarter: 2024Q4

REPORT INFORMATION
  Report Type: Spontaneous
  Country: JP (occurrence: JP)
  Receive Date: 20241003
  Receipt Date: 20241011
  Transmission Date: 20250114
  Serious: Yes (Other)
  Sender: TEVA
  Company Number: JP-TEVA-VS-3249310

PATIENT
  Age: 90 Year
  Sex: Female

DRUGS (3)
  1. RAMELTEON [Suspect]
     Active Substance: RAMELTEON
     Indication: Insomnia
     Dosage: DOSAGE IS UNKNOWN
     Route: 048
  2. QUETIAPINE [Concomitant]
     Active Substance: QUETIAPINE
     Indication: Insomnia
     Dosage: DOSAGE IS UNKNOWN
     Route: 048
  3. DAYVIGO [Concomitant]
     Active Substance: LEMBOREXANT
     Indication: Insomnia
     Dosage: DOSAGE IS UNKNOWN
     Route: 048

REACTIONS (3)
  - Apnoea [Recovering/Resolving]
  - Glossoptosis [Unknown]
  - Physical deconditioning [Unknown]
